FAERS Safety Report 8287009-5 (Version None)
Quarter: 2012Q2

REPORT INFORMATION
  Report Type: 
  Country: None (occurrence: None)
  Receive Date: 20120416
  Receipt Date: 20120406
  Transmission Date: 20120825
  Serious: Yes (Hospitalization)
  Sender: FDA-Public Use
  Company Number: US-BAYER-2011-111990

PATIENT
  Age: 46 Year
  Sex: Female
  Weight: 108.84 kg

DRUGS (8)
  1. NSAID'S [Concomitant]
  2. LISINOPRIL [Concomitant]
  3. VITAMIN D [COLECALCIFEROL] [Concomitant]
  4. ULTRACET [Concomitant]
     Dosage: 1 DF, BID, PRN
     Route: 048
  5. ATARAX [Concomitant]
     Dosage: 25 MG, BID, PRN
  6. HYDROCHLOROTHIAZIDE [Concomitant]
  7. YAZ [Suspect]
     Indication: ORAL CONTRACEPTION
     Dosage: UNK
     Dates: start: 20081101, end: 20081201
  8. YASMIN [Suspect]
     Dosage: UNK
     Dates: start: 20081101, end: 20081201

REACTIONS (2)
  - DEEP VEIN THROMBOSIS [None]
  - PAIN [None]
